FAERS Safety Report 7743342-4 (Version None)
Quarter: 2011Q3

REPORT INFORMATION
  Report Type: 
  Country: None (occurrence: None)
  Receive Date: 20110826
  Receipt Date: 20110817
  Transmission Date: 20111222
  Serious: Yes (Other)
  Sender: FDA-Public Use
  Company Number: 2011SP038969

PATIENT
  Age: 24 Year
  Sex: Female
  Weight: 87.9978 kg

DRUGS (2)
  1. IMPLANON [Suspect]
     Indication: CONTRACEPTION
     Dosage: 1 DF
     Dates: end: 20110126
  2. ALBUTEROL [Concomitant]

REACTIONS (9)
  - IMPLANT SITE INDURATION [None]
  - IMPLANT SITE WARMTH [None]
  - IMPLANT SITE SWELLING [None]
  - IMPLANT SITE PAIN [None]
  - WEIGHT INCREASED [None]
  - ASTHMA [None]
  - IMPLANT SITE EFFUSION [None]
  - IMPLANT SITE ERYTHEMA [None]
  - CONDITION AGGRAVATED [None]
